FAERS Safety Report 16609310 (Version 1)
Quarter: 2019Q3

REPORT INFORMATION
  Report Type: Spontaneous
  Country: CA (occurrence: CA)
  Receive Date: 20190722
  Receipt Date: 20190722
  Transmission Date: 20191004
  Serious: Yes (Hospitalization, Other)
  Sender: FDA-Public Use
  Company Number: CA-TEVA-2019-CA-1082383

PATIENT
  Age: 18 Year
  Sex: Female

DRUGS (6)
  1. SOLU-MEDROL [Concomitant]
     Active Substance: METHYLPREDNISOLONE SODIUM SUCCINATE
     Dosage: ONCE IN 8 HOURS
     Route: 042
     Dates: start: 201901, end: 2019
  2. PREDNISONE. [Suspect]
     Active Substance: PREDNISONE
     Indication: COLITIS ULCERATIVE
     Dosage: ONCE A DAY
     Dates: end: 2013
  3. FENTANYL. [Concomitant]
     Active Substance: FENTANYL
     Route: 042
     Dates: start: 20190208, end: 20190208
  4. PREDNISONE. [Suspect]
     Active Substance: PREDNISONE
     Dosage: FOR 2 WEEKS
     Dates: start: 20190108
  5. FERAMAX OD [Concomitant]
     Dates: start: 2019
  6. PREDNISONE. [Suspect]
     Active Substance: PREDNISONE
     Dosage: DECREASED

REACTIONS (17)
  - Micturition urgency [Unknown]
  - Haemoglobin decreased [Unknown]
  - Hypokalaemia [Unknown]
  - Nausea [Not Recovered/Not Resolved]
  - C-reactive protein increased [Unknown]
  - Stress [Unknown]
  - Iron deficiency anaemia [Unknown]
  - Frequent bowel movements [Not Recovered/Not Resolved]
  - Abdominal pain [Unknown]
  - Haematochezia [Unknown]
  - Drug ineffective [Unknown]
  - Weight decreased [Unknown]
  - Diarrhoea haemorrhagic [Unknown]
  - Discomfort [Unknown]
  - Cushingoid [Not Recovered/Not Resolved]
  - Colitis ulcerative [Recovering/Resolving]
  - Vomiting [Not Recovered/Not Resolved]

NARRATIVE: CASE EVENT DATE: 2013
